FAERS Safety Report 6839278-3 (Version None)
Quarter: 2010Q3

REPORT INFORMATION
  Report Type: 
  Country: None (occurrence: None)
  Receive Date: 20100714
  Receipt Date: 20090928
  Transmission Date: 20110219
  Serious: No
  Sender: FDA-Public Use
  Company Number: US-KINGPHARMUSA00001-K200901193

PATIENT
  Sex: Female
  Weight: 49.887 kg

DRUGS (3)
  1. BICILLIN L-A [Suspect]
     Indication: LYME DISEASE
     Dosage: 600000 U, QW
     Route: 030
     Dates: start: 20090917
  2. ZITHROMAX [Concomitant]
     Indication: LYME DISEASE
     Dosage: UNK
  3. DORYX [Concomitant]
     Indication: LYME DISEASE
     Dosage: UNK

REACTIONS (1)
  - HEADACHE [None]
